FAERS Safety Report 8263473-2 (Version None)
Quarter: 2012Q1

REPORT INFORMATION
  Report Type: 
  Country: None (occurrence: None)
  Receive Date: 20120327
  Receipt Date: 20110426
  Transmission Date: 20120608
  Serious: Yes (Hospitalization, Other)
  Sender: FDA-Public Use
  Company Number: PHHY2011US36014

PATIENT
  Age: 80 Year
  Sex: Female
  Weight: 61.2 kg

DRUGS (1)
  1. GLEEVEC [Suspect]
     Indication: CHRONIC MYELOID LEUKAEMIA
     Dosage: 400 MG, DAILY, ORAL
     Dates: start: 20101220

REACTIONS (2)
  - HAEMATOCHEZIA [None]
  - PNEUMONIA [None]
